FAERS Safety Report 4383595-6 (Version None)
Quarter: 2004Q2

REPORT INFORMATION
  Report Type: 
  Country: None (occurrence: None)
  Receive Date: 20040618
  Receipt Date: 20040604
  Transmission Date: 20050107
  Serious: Yes (Hospitalization)
  Sender: FDA-Public Use
  Company Number: 00/00016-USE

PATIENT
  Age: 56 Year
  Sex: Male

DRUGS (7)
  1. SOTALOL HCL [Suspect]
     Dosage: ORAL
     Route: 048
  2. ATARAX [Suspect]
     Dates: start: 19991001, end: 19991001
  3. MIDAZOLAM HCL [Suspect]
     Indication: ANAESTHESIA
     Dates: start: 19991001, end: 19991001
  4. DIPRIVAN [Suspect]
     Indication: ANAESTHESIA
     Dates: start: 19991001, end: 19991001
  5. FORENE (ISOFLURANE) [Concomitant]
  6. FORENE (ISOFLURANE) [Concomitant]
  7. SUFENTA [Concomitant]

REACTIONS (2)
  - IRIDOCYCLITIS [None]
  - VITREOUS DISORDER [None]
